FAERS Safety Report 6875260-8 (Version None)
Quarter: 2010Q3

REPORT INFORMATION
  Report Type: 
  Country: None (occurrence: None)
  Receive Date: 20100727
  Receipt Date: 20100715
  Transmission Date: 20110219
  Serious: Yes (Other)
  Sender: FDA-Public Use
  Company Number: US-JNJFOC-20100606098

PATIENT
  Sex: Female
  Weight: 94.35 kg

DRUGS (15)
  1. STELARA [Suspect]
     Indication: PSORIATIC ARTHROPATHY
     Route: 058
  2. STELARA [Suspect]
     Route: 058
  3. STELARA [Suspect]
     Route: 058
  4. STELARA [Suspect]
     Route: 058
  5. STELARA [Suspect]
     Indication: PSORIASIS
     Route: 058
  6. STELARA [Suspect]
     Route: 058
  7. STELARA [Suspect]
     Route: 058
  8. STELARA [Suspect]
     Route: 058
  9. METFORMIN HCL [Concomitant]
     Indication: DIABETES MELLITUS
     Route: 048
  10. TRICOR [Concomitant]
     Route: 048
  11. ZOCOR [Concomitant]
     Route: 048
  12. ACTOS [Concomitant]
     Route: 048
  13. CELEXA [Concomitant]
     Route: 048
  14. LIMBITROL [Concomitant]
     Route: 048
  15. ZESTRIL [Concomitant]
     Route: 048

REACTIONS (4)
  - BLOOD GLUCOSE INCREASED [None]
  - BLOOD TRIGLYCERIDES INCREASED [None]
  - LIPIDS INCREASED [None]
  - LIVER FUNCTION TEST ABNORMAL [None]
